FAERS Safety Report 6232789-3 (Version None)
Quarter: 2009Q2

REPORT INFORMATION
  Report Type: 
  Country: None (occurrence: None)
  Receive Date: 20090612
  Receipt Date: 20090612
  Transmission Date: 20091009
  Serious: Yes (Hospitalization)
  Sender: FDA-Public Use
  Company Number: None

PATIENT
  Age: 66 Year
  Sex: Male
  Weight: 95 kg

DRUGS (11)
  1. VASOTEC [Suspect]
     Indication: HYPERTENSION
     Dosage: 10MG BID PO
     Route: 048
     Dates: start: 20080601, end: 20090605
  2. COLACE [Concomitant]
  3. SENOKOT [Concomitant]
  4. ASCORBIC ACID [Concomitant]
  5. VICODIN ES [Concomitant]
  6. FLEXERIL [Concomitant]
  7. VERAPAMIL [Concomitant]
  8. HYDROCHLOROTHIAZIDE [Concomitant]
  9. METFORMIN HCL [Concomitant]
  10. OMEPRAZOLE [Concomitant]
  11. LANTUS [Concomitant]

REACTIONS (3)
  - ANGIOEDEMA [None]
  - EOSINOPHIL COUNT DECREASED [None]
  - NO THERAPEUTIC RESPONSE [None]
